FAERS Safety Report 15928991 (Version 1)
Quarter: 2019Q1

REPORT INFORMATION
  Report Type: Report from Study
  Country: AU (occurrence: AU)
  Receive Date: 20190206
  Receipt Date: 20190206
  Transmission Date: 20190417
  Serious: Yes (Disabling)
  Sender: FDA-Public Use
  Company Number: AU-MYLANLABS-2019M1010342

PATIENT
  Age: 34 Year
  Sex: Male

DRUGS (1)
  1. MYLAN-EMTRICITABINE/TENOFOVIR DISOPROXIL [Suspect]
     Active Substance: EMTRICITABINE\TENOFOVIR DISOPROXIL
     Indication: PRODUCT USED FOR UNKNOWN INDICATION
     Dosage: 1 DOSAGE FORM, QD
     Route: 048
     Dates: start: 20160712, end: 20171019

REACTIONS (1)
  - HIV test positive [Unknown]

NARRATIVE: CASE EVENT DATE: 20180730
